FAERS Safety Report 10932423 (Version 1)
Quarter: 2015Q1

REPORT INFORMATION
  Report Type: Spontaneous
  Country: US (occurrence: None)
  Receive Date: 20150319
  Receipt Date: 20150319
  Transmission Date: 20150721
  Serious: No
  Sender: FDA-Public Use
  Company Number: None

PATIENT
  Age: 56 Year
  Sex: Female
  Weight: 86.1 kg

DRUGS (2)
  1. LITHIUM [Suspect]
     Active Substance: LITHIUM CARBONATE
     Indication: ELECTROCARDIOGRAM
     Route: 048
     Dates: start: 20150120
  2. DEPRESSION [Concomitant]

REACTIONS (1)
  - Bradycardia [None]

NARRATIVE: CASE EVENT DATE: 20150129
